FAERS Safety Report 22103297 (Version 1)
Quarter: 2023Q1

REPORT INFORMATION
  Report Type: Spontaneous
  Country: CN (occurrence: None)
  Receive Date: 20230313
  Receipt Date: 20230313
  Transmission Date: 20230417
  Serious: Yes (Hospitalization)
  Sender: FDA-Public Use
  Company Number: None

PATIENT
  Age: 28 Year
  Sex: Male

DRUGS (3)
  1. ADALIMUMAB [Suspect]
     Active Substance: ADALIMUMAB
     Indication: Rash pustular
     Route: 065
  2. LEFLUNOMIDE [Suspect]
     Active Substance: LEFLUNOMIDE
     Indication: Rash pustular
     Route: 065
  3. CLINDAMYCIN [Suspect]
     Active Substance: CLINDAMYCIN

REACTIONS (27)
  - Drug ineffective [None]
  - Arthritis reactive [None]
  - Pyrexia [None]
  - Fatigue [None]
  - Rash pustular [None]
  - Rash [None]
  - Perineal rash [None]
  - Purulent discharge [None]
  - Penile erythema [None]
  - Mouth ulceration [None]
  - Eye discharge [None]
  - Vision blurred [None]
  - Arthralgia [None]
  - Arthralgia [None]
  - Joint swelling [None]
  - Pain in extremity [None]
  - Penile swelling [None]
  - Penile ulceration [None]
  - Uveitis [None]
  - Enthesopathy [None]
  - Tendonitis [None]
  - Oral mucosa erosion [None]
  - Ureaplasma infection [None]
  - HLA-B*27 positive [None]
  - Urethritis [None]
  - Protein urine [None]
  - Red blood cells urine [None]
